FAERS Safety Report 10233142 (Version 1)
Quarter: 2014Q2

REPORT INFORMATION
  Report Type: Spontaneous
  Country: JP (occurrence: JP)
  Receive Date: 20140612
  Receipt Date: 20140612
  Transmission Date: 20141212
  Serious: Yes (Other)
  Sender: FDA-Public Use
  Company Number: JP-PFIZER INC-2014156176

PATIENT
  Age: 59 Year
  Sex: Female

DRUGS (1)
  1. XALATAN [Suspect]
     Indication: VISUAL FIELD DEFECT
     Dosage: UNK
     Route: 047

REACTIONS (2)
  - Visual acuity reduced [Unknown]
  - Off label use [Unknown]
